FAERS Safety Report 24730317 (Version 1)
Quarter: 2024Q4

REPORT INFORMATION
  Report Type: Spontaneous
  Country: CN (occurrence: None)
  Receive Date: 20241213
  Receipt Date: 20241213
  Transmission Date: 20250115
  Serious: Yes (Other)
  Sender: ENCUBE ETHICALS
  Company Number: CN-Encube-001437

PATIENT
  Age: 47 Year
  Sex: Female

DRUGS (5)
  1. TACROLIMUS [Suspect]
     Active Substance: TACROLIMUS
     Indication: Jaundice
  2. METHYLPREDNISOLONE [Concomitant]
     Active Substance: METHYLPREDNISOLONE
     Indication: Jaundice
  3. METHYLPREDNISOLONE [Concomitant]
     Active Substance: METHYLPREDNISOLONE
     Indication: Jaundice
  4. TACROLIMUS [Suspect]
     Active Substance: TACROLIMUS
     Indication: Jaundice
     Dosage: DRUG RESTARTED
  5. METHYLPREDNISOLONE [Concomitant]
     Active Substance: METHYLPREDNISOLONE
     Indication: Jaundice

REACTIONS (3)
  - Stevens-Johnson syndrome [Recovered/Resolved]
  - Off label use [Unknown]
  - Lacrimation increased [Unknown]
